FAERS Safety Report 15746769 (Version 3)
Quarter: 2019Q2

REPORT INFORMATION
  Report Type: Spontaneous
  Country: US (occurrence: US)
  Receive Date: 20181220
  Receipt Date: 20190603
  Transmission Date: 20190711
  Serious: Yes (Other)
  Sender: FDA-Public Use
  Company Number: US-SA-2018SA344713

PATIENT
  Age: 34 Year
  Sex: Female
  Weight: 79 kg

DRUGS (2)
  1. TAXOTERE [Suspect]
     Active Substance: DOCETAXEL
     Indication: BREAST CANCER FEMALE
     Dosage: BIWEEKLY
     Route: 042
     Dates: start: 201611, end: 201611
  2. TAXOTERE [Suspect]
     Active Substance: DOCETAXEL
     Dosage: BIWEEKLY
     Route: 042
     Dates: start: 201701, end: 201701

REACTIONS (6)
  - Anxiety [Unknown]
  - Emotional distress [Unknown]
  - Pain [Unknown]
  - Psychological trauma [Unknown]
  - Alopecia [Recovering/Resolving]
  - Impaired quality of life [Unknown]
